FAERS Safety Report 12877172 (Version 1)
Quarter: 2016Q4

REPORT INFORMATION
  Report Type: Spontaneous
  Country: CO (occurrence: US)
  Receive Date: 20161023
  Receipt Date: 20161023
  Transmission Date: 20170207
  Serious: Yes (Other)
  Sender: FDA-Public Use
  Company Number: None

PATIENT
  Age: 34 Year
  Sex: Female
  Weight: 80 kg

DRUGS (4)
  1. ORLISTAT [Suspect]
     Active Substance: ORLISTAT
     Indication: WEIGHT CONTROL
     Route: 048
     Dates: start: 20160901, end: 20160930
  2. TRAZODONA TRIPTICO [Concomitant]
  3. NARAPTRIPTAN [Concomitant]
  4. DESVENLAFIXINA [Concomitant]

REACTIONS (2)
  - Condition aggravated [None]
  - Migraine [None]

NARRATIVE: CASE EVENT DATE: 20160913
